FAERS Safety Report 4549891-4 (Version None)
Quarter: 2004Q4

REPORT INFORMATION
  Report Type: 
  Country: None (occurrence: None)
  Receive Date: 20041227
  Receipt Date: 20041006
  Transmission Date: 20050328
  Serious: No
  Sender: FDA-Public Use
  Company Number: 04P-163-0276401-00

PATIENT
  Age: 15 Year
  Sex: Female
  Weight: 54.6 kg

DRUGS (6)
  1. HUMIRA [Suspect]
     Indication: CROHN'S DISEASE
     Dosage: 40 MG, 1 IN 1 WK, SUBCUTANEOUS
     Route: 058
     Dates: start: 20031101
  2. BALSALAZIDE SODIUM [Concomitant]
  3. LANSOPRAZOLE [Concomitant]
  4. RANITIDINE HYDROCHLORIDE [Concomitant]
  5. VICON FORTE [Concomitant]
  6. PREDNISONE [Concomitant]

REACTIONS (1)
  - HEADACHE [None]
